FAERS Safety Report 7615808-9 (Version None)
Quarter: 2011Q3

REPORT INFORMATION
  Report Type: 
  Country: None (occurrence: None)
  Receive Date: 20110718
  Receipt Date: 20110718
  Transmission Date: 20111222
  Serious: No
  Sender: FDA-Public Use
  Company Number: None

PATIENT
  Sex: Male
  Weight: 83.5 kg

DRUGS (13)
  1. MULTI-VITAMIN [Concomitant]
  2. ASPIRIN [Concomitant]
  3. VITAMIN D [Concomitant]
  4. LYCOPENE [Concomitant]
  5. ASCORBIC ACID [Concomitant]
  6. ZINC GLUCON [Concomitant]
  7. LEUPROLIDE ACETATE [Suspect]
     Dosage: 45 MG
  8. DETROL LA [Concomitant]
  9. CASODEX [Suspect]
     Dosage: 6050 MG
  10. AXERT [Concomitant]
  11. VITAMIN E [Concomitant]
  12. IMITREX [Concomitant]
  13. MEGA RED [Concomitant]

REACTIONS (2)
  - NO THERAPEUTIC RESPONSE [None]
  - HEADACHE [None]
